FAERS Safety Report 11089518 (Version 2)
Quarter: 2015Q2

REPORT INFORMATION
  Report Type: Spontaneous
  Country: IT (occurrence: IT)
  Receive Date: 20150505
  Receipt Date: 20150615
  Transmission Date: 20150821
  Serious: Yes (Hospitalization)
  Sender: FDA-Public Use
  Company Number: IT-TEVA-559183ACC

PATIENT
  Age: 49 Year
  Sex: Female

DRUGS (6)
  1. XEPLION - JANSSEN - CILAG INTERNATIONAL N.V. [Suspect]
     Active Substance: PALIPERIDONE PALMITATE
     Indication: DELUSIONAL DISORDER, UNSPECIFIED TYPE
     Dosage: 150 MG
     Route: 030
     Dates: start: 20141213, end: 20150313
  2. XEPLION - JANSSEN - CILAG INTERNATIONAL N.V. [Suspect]
     Active Substance: PALIPERIDONE PALMITATE
     Dosage: 50 MG MONTHLY
     Route: 030
     Dates: start: 20141213, end: 20150318
  3. DOSTINEX [Concomitant]
     Active Substance: CABERGOLINE
     Indication: PRODUCT USED FOR UNKNOWN INDICATION
     Dosage: 0.25 MG
     Route: 048
  4. ATARAX [Suspect]
     Active Substance: HYDROXYZINE\HYDROXYZINE HYDROCHLORIDE
     Indication: DELUSIONAL DISORDER, UNSPECIFIED TYPE
     Dosage: 25 MILLIGRAM DAILY; 25 MG DAILY
     Route: 048
     Dates: start: 20150301, end: 20150403
  5. CARBOLITHIUM - 300 MG CAPSULE RIGIDE - TEVA ITALIA S.R.L. [Suspect]
     Active Substance: LITHIUM CARBONATE
     Indication: DELUSIONAL DISORDER, UNSPECIFIED TYPE
     Dosage: 900 MILLIGRAM DAILY; 900 MG DAILY
     Route: 048
  6. XEPLION - JANSSEN - CILAG INTERNATIONAL N.V. [Suspect]
     Active Substance: PALIPERIDONE PALMITATE
     Dosage: 100 MG
     Route: 030
     Dates: start: 20141218, end: 20150318

REACTIONS (4)
  - Dilatation ventricular [Not Recovered/Not Resolved]
  - Parkinsonism [Not Recovered/Not Resolved]
  - Electrocardiogram QT prolonged [Not Recovered/Not Resolved]
  - Hyperprolactinaemia [Not Recovered/Not Resolved]

NARRATIVE: CASE EVENT DATE: 20150403
